FAERS Safety Report 9100506 (Version 2)
Quarter: 2013Q3

REPORT INFORMATION
  Report Type: Spontaneous
  Country: KR (occurrence: KR)
  Receive Date: 20130215
  Receipt Date: 20130819
  Transmission Date: 20140515
  Serious: Yes (Hospitalization, Other)
  Sender: FDA-Public Use
  Company Number: KR-JNJFOC-20130204700

PATIENT
  Age: 67 Year
  Sex: Male

DRUGS (7)
  1. TRAMADOL HYDROCHLORIDE [Suspect]
     Indication: PAIN
     Route: 065
  2. TRAMADOL HYDROCHLORIDE [Suspect]
     Indication: MUSCULOSKELETAL PAIN
     Route: 065
  3. TRAMADOL HYDROCHLORIDE [Suspect]
     Indication: POST HERPETIC NEURALGIA
     Route: 065
  4. FENTANYL [Suspect]
     Indication: PAIN
     Route: 062
  5. PREGABALIN [Suspect]
     Indication: POST HERPETIC NEURALGIA
     Route: 048
  6. PREGABALIN [Suspect]
     Indication: POST HERPETIC NEURALGIA
     Route: 048
  7. OXYCODONE [Suspect]
     Indication: PAIN
     Route: 065

REACTIONS (4)
  - Chills [Recovered/Resolved]
  - Hyperhidrosis [Recovering/Resolving]
  - Hyperaesthesia [Recovering/Resolving]
  - Rhinorrhoea [Recovered/Resolved]
